FAERS Safety Report 9871173 (Version 1)
Quarter: 2014Q1

REPORT INFORMATION
  Report Type: Spontaneous
  Country: BR (occurrence: BR)
  Receive Date: 20140205
  Receipt Date: 20140205
  Transmission Date: 20141002
  Serious: Yes (Hospitalization, Other)
  Sender: FDA-Public Use
  Company Number: BR-SA-2014SA011481

PATIENT
  Age: 54 Year
  Sex: Female
  Weight: 69 kg

DRUGS (8)
  1. LANTUS [Suspect]
     Indication: TYPE 2 DIABETES MELLITUS
     Dosage: DOSE:48 UNIT(S)
     Route: 065
     Dates: start: 2007
  2. CLIKSTAR [Concomitant]
     Indication: DEVICE THERAPY
  3. METFORMIN HYDROCHLORIDE [Concomitant]
     Indication: TYPE 2 DIABETES MELLITUS
     Dosage: START DATE: 15 YEARS AGO?STRENGTH: 500 MG
     Dates: start: 1999
  4. SIMVASTATIN [Concomitant]
     Indication: BLOOD CHOLESTEROL
     Dosage: START DATE: 09 YEARS AGO?STRENGTH: 20 MG
     Dates: start: 2005
  5. OMEPRAZOLE [Concomitant]
     Indication: GASTRIC DISORDER
     Dosage: START DATE: 6 YEARS AGO?STRENGTH: 20 MG
     Dates: start: 2008
  6. DIACEREIN [Concomitant]
     Indication: OSTEOARTHRITIS
     Dosage: STRENGTH: 30 MG?START DATE: 5 YEARS AGO
     Dates: start: 2009
  7. ARADOIS [Concomitant]
     Indication: HYPERTENSION
     Dosage: START DATE: 8 YEARS AGO?STRENGTH: 50 MG
     Dates: start: 2006
  8. ATENOLOL [Concomitant]
     Indication: HYPERTENSION
     Dosage: START DATE: 8 YEARS AGO?STRENGTH: 50 MG
     Dates: start: 2006

REACTIONS (6)
  - Hypothyroidism [Recovering/Resolving]
  - Embolism [Recovering/Resolving]
  - Syncope [Recovering/Resolving]
  - Back pain [Recovering/Resolving]
  - Dyspnoea [Recovering/Resolving]
  - Renal cancer [Recovering/Resolving]
